FAERS Safety Report 6293685-9 (Version None)
Quarter: 2009Q3

REPORT INFORMATION
  Report Type: 
  Country: None (occurrence: None)
  Receive Date: 20090803
  Receipt Date: 20090609
  Transmission Date: 20100115
  Serious: Yes (Hospitalization, Other)
  Sender: FDA-Public Use
  Company Number: DE-JNJFOC-20090501759

PATIENT
  Sex: Male
  Weight: 58 kg

DRUGS (3)
  1. HALOPERIDOL DECANOATE [Suspect]
     Indication: SCHIZOPHRENIA, PARANOID TYPE
     Route: 030
  2. INSULIN [Concomitant]
  3. PAIN MEDICATION (NOS) [Concomitant]

REACTIONS (3)
  - CHOLESTATIC LIVER INJURY [None]
  - HEPATITIS [None]
  - PSYCHOTIC DISORDER [None]
